FAERS Safety Report 15023769 (Version 1)
Quarter: 2018Q2

REPORT INFORMATION
  Report Type: Spontaneous
  Country: US (occurrence: US)
  Receive Date: 20180618
  Receipt Date: 20180618
  Transmission Date: 20180711
  Serious: Yes (Other)
  Sender: FDA-Public Use
  Company Number: US-BAYER-2018-110258

PATIENT
  Age: 23 Year
  Sex: Female

DRUGS (1)
  1. MIRENA [Suspect]
     Active Substance: LEVONORGESTREL
     Indication: CONTRACEPTION
     Dosage: 20 MCG/24HR, CONT
     Route: 015
     Dates: start: 20180225, end: 20180529

REACTIONS (3)
  - Abdominal pain lower [Recovered/Resolved]
  - Device expulsion [None]
  - Genital haemorrhage [Recovered/Resolved]

NARRATIVE: CASE EVENT DATE: 201805
